FAERS Safety Report 7347222-8 (Version None)
Quarter: 2011Q1

REPORT INFORMATION
  Report Type: 
  Country: None (occurrence: None)
  Receive Date: 20110311
  Receipt Date: 20110309
  Transmission Date: 20110831
  Serious: Yes (Other)
  Sender: FDA-Public Use
  Company Number: US-PFIZER INC-2007063620

PATIENT
  Sex: Male
  Weight: 63.492 kg

DRUGS (9)
  1. CHANTIX [Suspect]
     Indication: SMOKING CESSATION THERAPY
     Dosage: 0.5 MG, UNK
     Dates: start: 20070722
  2. SYMBICORT [Concomitant]
     Indication: ASTHMA
     Dosage: UNK
  3. ALBUTEROL [Concomitant]
     Dosage: UNK
  4. CHANTIX [Suspect]
     Dosage: UNK
     Dates: start: 20070101, end: 20070101
  5. ASMANEX TWISTHALER [Concomitant]
     Indication: ASTHMA
     Dosage: UNK
  6. PROAIR HFA [Concomitant]
     Indication: ASTHMA
     Dosage: UNK
  7. ADVAIR DISKUS 100/50 [Concomitant]
     Indication: ASTHMA
     Dosage: 500 MG, 1X/DAY
  8. INDERAL [Concomitant]
     Dosage: UNK
  9. DILTIAZEM [Concomitant]
     Indication: BLOOD PRESSURE ABNORMAL
     Dosage: 50 MG, 3X/DAY

REACTIONS (13)
  - DISTURBANCE IN ATTENTION [None]
  - NIGHTMARE [None]
  - UNEVALUABLE EVENT [None]
  - CONVULSION [None]
  - TREMOR [None]
  - TACHYPHRENIA [None]
  - ANGER [None]
  - THIRST [None]
  - ABNORMAL BEHAVIOUR [None]
  - AGGRESSION [None]
  - ASTHMA [None]
  - AMNESIA [None]
  - SPEECH DISORDER [None]
